FAERS Safety Report 6797332-9 (Version None)
Quarter: 2010Q2

REPORT INFORMATION
  Report Type: 
  Country: None (occurrence: None)
  Receive Date: 20100623
  Receipt Date: 20100608
  Transmission Date: 20101027
  Serious: Yes (Hospitalization)
  Sender: FDA-Public Use
  Company Number: 2010000182

PATIENT
  Age: 59 Year
  Sex: Female
  Weight: 97.1 kg

DRUGS (8)
  1. ERLOTINIB HYDROCHLORIDE [Suspect]
     Indication: PANCREATIC CARCINOMA
     Dosage: 100 MG, QD, ORAL
     Route: 048
     Dates: start: 20091116
  2. GEMCITABINE [Suspect]
     Indication: PANCREATIC CARCINOMA
     Dosage: 1000 MG/M2, DAYS 1, 8 AND 15), INTRAVENOUS
     Route: 042
     Dates: start: 20091116
  3. IMC-A12 [Suspect]
     Indication: PANCREATIC CARCINOMA
     Dosage: 6 MG/KG, DAYS 1, 8, 15 AND 22), INTRAVENOUS
     Route: 042
     Dates: start: 20091116
  4. GLUCOTROL [Concomitant]
  5. LANTUS [Concomitant]
  6. CRESTOR [Concomitant]
  7. MIRTAZAPINE [Concomitant]
  8. LORTAB (VICODIN) [Concomitant]

REACTIONS (6)
  - AORTIC VALVE INCOMPETENCE [None]
  - MYOCARDIAL INFARCTION [None]
  - MYOCARDIAL ISCHAEMIA [None]
  - STRESS [None]
  - TACHYCARDIA [None]
  - TRICUSPID VALVE INCOMPETENCE [None]
